FAERS Safety Report 5814036-7 (Version None)
Quarter: 2008Q3

REPORT INFORMATION
  Report Type: 
  Country: None (occurrence: None)
  Receive Date: 20080717
  Receipt Date: 20080708
  Transmission Date: 20090109
  Serious: Yes (Other)
  Sender: FDA-Public Use
  Company Number: GB-PFIZER INC-2008055039

PATIENT
  Age: 51 Year
  Sex: Male

DRUGS (4)
  1. SILDENAFIL CITRATE [Suspect]
  2. PROPRANOLOL [Interacting]
     Indication: MIGRAINE
  3. ATENOLOL [Interacting]
     Indication: HYPERTENSION
  4. DOSULEPIN [Concomitant]

REACTIONS (4)
  - DRUG INTERACTION [None]
  - HYPOPITUITARISM [None]
  - PITUITARY HAEMORRHAGE [None]
  - PITUITARY TUMOUR BENIGN [None]
